FAERS Safety Report 9696910 (Version 2)
Quarter: 2013Q4

REPORT INFORMATION
  Report Type: Spontaneous
  Country: US (occurrence: US)
  Receive Date: 20131119
  Receipt Date: 20131119
  Transmission Date: 20140711
  Serious: No
  Sender: FDA-Public Use
  Company Number: US-GILEAD-2007-0013701

PATIENT
  Age: 51 Year
  Sex: Male
  Weight: 78.02 kg

DRUGS (11)
  1. LETAIRIS [Suspect]
     Indication: PULMONARY ARTERIAL HYPERTENSION
     Route: 048
     Dates: start: 20070907
  2. PROTONIX [Concomitant]
     Route: 048
  3. PLAQUENIL [Concomitant]
     Route: 048
  4. LASIX [Concomitant]
     Route: 048
  5. PREDNISONE [Concomitant]
     Route: 048
  6. LIPITOR [Concomitant]
     Route: 048
  7. CARDIZEM [Concomitant]
     Route: 048
  8. ZESTRIL [Concomitant]
     Route: 048
  9. ASPIRIN [Concomitant]
     Route: 048
  10. POTASSIUM CHLORIDE [Concomitant]
     Route: 048
  11. VIAGRA [Concomitant]

REACTIONS (4)
  - Pain [Unknown]
  - Abdominal distension [Unknown]
  - Dyspnoea [Unknown]
  - Oedema peripheral [Unknown]
